FAERS Safety Report 8269459 (Version 4)
Quarter: 2013Q2

REPORT INFORMATION
  Report Type: Spontaneous
  Country: US (occurrence: US)
  Receive Date: 20111130
  Receipt Date: 20130521
  Transmission Date: 20140414
  Serious: Yes (Other)
  Sender: FDA-Public Use
  Company Number: US-US-EMD SERONO, INC.-7059432

PATIENT
  Sex: Male

DRUGS (1)
  1. REBIF [Suspect]
     Indication: PRODUCT USED FOR UNKNOWN INDICATION
     Route: 058
     Dates: start: 20031114

REACTIONS (4)
  - Renal disorder [Not Recovered/Not Resolved]
  - Abdominal hernia [Recovered/Resolved]
  - Injection site induration [Unknown]
  - Injection site bruising [Unknown]
